FAERS Safety Report 8471103-X (Version None)
Quarter: 2012Q2

REPORT INFORMATION
  Report Type: 
  Country: None (occurrence: None)
  Receive Date: 20120627
  Receipt Date: 20120616
  Transmission Date: 20120825
  Serious: Yes (Hospitalization, Other)
  Sender: FDA-Public Use
  Company Number: CA-PFIZER INC-2012144370

PATIENT
  Age: 60 Year
  Sex: Male

DRUGS (5)
  1. ENBREL [Interacting]
     Indication: RHEUMATOID ARTHRITIS
     Dosage: 50 MG, WEEKLY
     Route: 058
     Dates: start: 20090715, end: 20110101
  2. ENBREL [Interacting]
     Dosage: UNK
  3. CIALIS [Interacting]
  4. VIAGRA [Suspect]
     Dosage: UNK
     Dates: start: 20120301
  5. COUMADIN [Concomitant]
     Dosage: UNK

REACTIONS (6)
  - EYE INJURY [None]
  - DRUG INTERACTION [None]
  - ARTHRALGIA [None]
  - MALAISE [None]
  - THERAPEUTIC RESPONSE DECREASED [None]
  - PAIN [None]
